FAERS Safety Report 15279044 (Version 1)
Quarter: 2018Q3

REPORT INFORMATION
  Report Type: Report from Study
  Country: None (occurrence: RO)
  Receive Date: 20180815
  Receipt Date: 20180815
  Transmission Date: 20181010
  Serious: Yes (Death)
  Sender: FDA-Public Use
  Company Number: RO-ABBVIE-18S-135-2452090-00

PATIENT
  Sex: Male

DRUGS (1)
  1. DUODOPA [Suspect]
     Active Substance: CARBIDOPA\LEVODOPA
     Indication: PARKINSON^S DISEASE
     Dosage: DM=4.00?DC=2.40?ED=1.20?NRED=3
     Route: 050
     Dates: start: 20130923, end: 20180811

REACTIONS (1)
  - Cardiopulmonary failure [Fatal]
